FAERS Safety Report 26162900 (Version 2)
Quarter: 2025Q4

REPORT INFORMATION
  Report Type: Spontaneous
  Country: US (occurrence: US)
  Receive Date: 20251216
  Receipt Date: 20251221
  Transmission Date: 20260117
  Serious: No
  Sender: NOVARTIS
  Company Number: US-002147023-NVSC2025US191987

PATIENT
  Sex: Male

DRUGS (1)
  1. ENTRESTO [Suspect]
     Active Substance: SACUBITRIL\VALSARTAN
     Indication: Product used for unknown indication
     Dosage: UNK
     Route: 065

REACTIONS (8)
  - Paraesthesia oral [Unknown]
  - Hypoaesthesia oral [Unknown]
  - Cough [Unknown]
  - Product after taste [Unknown]
  - Psychiatric symptom [Unknown]
  - Judgement impaired [Unknown]
  - Abnormal behaviour [Unknown]
  - Memory impairment [Unknown]
